FAERS Safety Report 11180037 (Version 2)
Quarter: 2015Q2

REPORT INFORMATION
  Report Type: Spontaneous
  Country: US (occurrence: US)
  Receive Date: 20150611
  Receipt Date: 20150626
  Transmission Date: 20150821
  Serious: Yes (Other)
  Sender: FDA-Public Use
  Company Number: US-BAYER-2015-026342

PATIENT
  Age: 32 Year
  Sex: Female
  Weight: 77.98 kg

DRUGS (4)
  1. IMPLANON [Concomitant]
     Active Substance: ETONOGESTREL
     Indication: CONTRACEPTION
  2. CLARITIN [Concomitant]
     Active Substance: LORATADINE
  3. MIRENA [Suspect]
     Active Substance: LEVONORGESTREL
     Dosage: UNK
     Route: 015
     Dates: start: 20071025
  4. THYROID [Concomitant]
     Active Substance: LEVOTHYROXINE\LIOTHYRONINE
     Dosage: 15 MG, UNK

REACTIONS (9)
  - Abortion induced [Unknown]
  - Genital haemorrhage [Unknown]
  - Pregnancy with contraceptive device [Recovered/Resolved]
  - Vaginal haemorrhage [Unknown]
  - Device ineffective [Unknown]
  - Procedural pain [Recovered/Resolved]
  - Device dislocation [Unknown]
  - Abdominal distension [Unknown]
  - Abdominal pain [Unknown]

NARRATIVE: CASE EVENT DATE: 20091201
